FAERS Safety Report 7709617-X (Version None)
Quarter: 2011Q3

REPORT INFORMATION
  Report Type: 
  Country: None (occurrence: None)
  Receive Date: 20110825
  Receipt Date: 20110810
  Transmission Date: 20111222
  Serious: Yes (Hospitalization)
  Sender: FDA-Public Use
  Company Number: US-GLAXOSMITHKLINE-A0873795A

PATIENT
  Age: 57 Year
  Sex: Male
  Weight: 135.9 kg

DRUGS (15)
  1. TERAZOSIN HCL [Concomitant]
  2. POTASSIUM CHLORIDE [Concomitant]
  3. CIALIS [Concomitant]
  4. LASIX [Concomitant]
  5. GLUCOTROL [Concomitant]
  6. AVANDIA [Suspect]
     Indication: DIABETES MELLITUS
     Route: 048
     Dates: end: 20061201
  7. VIAGRA [Concomitant]
  8. BEXTRA [Concomitant]
  9. HYTRIN [Concomitant]
  10. LOTREL [Concomitant]
  11. ATACAND [Concomitant]
  12. BENICAR [Concomitant]
  13. ASPIRIN [Concomitant]
  14. AMARYL [Concomitant]
  15. BYETTA [Concomitant]

REACTIONS (2)
  - CORONARY ARTERY DISEASE [None]
  - MYOCARDIAL INFARCTION [None]
